FAERS Safety Report 4629913-2 (Version None)
Quarter: 2005Q2

REPORT INFORMATION
  Report Type: 
  Country: None (occurrence: None)
  Receive Date: 20050408
  Receipt Date: 20050323
  Transmission Date: 20051028
  Serious: Yes (Death)
  Sender: FDA-Public Use
  Company Number: JP-MERCK-0503USA04816

PATIENT
  Age: 51 Year
  Sex: Male

DRUGS (7)
  1. PRIMAXIN [Suspect]
     Indication: MYELOPROLIFERATIVE DISORDER
     Route: 042
     Dates: start: 20050201, end: 20050201
  2. PENICILLIN G POTASSIUM [Concomitant]
     Indication: STAPHYLOCOCCAL INFECTION
     Route: 030
     Dates: start: 20050205, end: 20050201
  3. MODACIN [Concomitant]
     Route: 042
     Dates: start: 20050101, end: 20050201
  4. CLINDAMYCIN PHOSPHATE [Concomitant]
     Route: 051
     Dates: start: 20050101, end: 20050201
  5. NAFAMOSTAT MESYLATE [Concomitant]
     Indication: DISSEMINATED INTRAVASCULAR COAGULATION
     Route: 042
  6. GLOBULIN, IMMUNE [Concomitant]
     Route: 030
  7. GRAN [Concomitant]
     Indication: NEUTROPHIL COUNT DECREASED
     Route: 051

REACTIONS (1)
  - GASTROINTESTINAL HAEMORRHAGE [None]
